FAERS Safety Report 8982611 (Version 1)
Quarter: 2012Q4

REPORT INFORMATION
  Report Type: 
  Country: US (occurrence: US)
  Receive Date: 20121212
  Receipt Date: 20121212
  Transmission Date: 20130627
  Serious: Yes (Death, Hospitalization, Other)
  Sender: FDA-Public Use
  Company Number: US-ASTELLAS-1118325

PATIENT
  Sex: Female

DRUGS (7)
  1. TARCEVA [Suspect]
     Indication: MALIGNANT RESPIRATORY TRACT NEOPLASM
     Route: 065
     Dates: start: 200612, end: 200707
  2. TARCEVA [Suspect]
     Route: 065
  3. DILTIAZEM [Concomitant]
     Route: 048
  4. PREDNISONE [Concomitant]
     Route: 065
  5. COUMADIN [Concomitant]
     Route: 065
  6. SOLU-MEDROL [Concomitant]
     Route: 042
  7. FLORA-Q [Concomitant]

REACTIONS (16)
  - Death [Fatal]
  - Dyspnoea exertional [Unknown]
  - Cough [Unknown]
  - Pneumonia [Unknown]
  - Chronic obstructive pulmonary disease [Unknown]
  - Pneumothorax [Unknown]
  - Lung neoplasm malignant [Unknown]
  - Renal failure acute [Unknown]
  - Metastases to bone [Unknown]
  - Metastases to liver [Unknown]
  - Drug intolerance [Unknown]
  - Weight decreased [Unknown]
  - Decreased appetite [Unknown]
  - Skin toxicity [Unknown]
  - Diarrhoea [Unknown]
  - Oedema peripheral [Unknown]
